FAERS Safety Report 8965806 (Version 2)
Quarter: 2013Q1

REPORT INFORMATION
  Report Type: Report from Study
  Country: AR (occurrence: AR)
  Receive Date: 20121214
  Receipt Date: 20130131
  Transmission Date: 20140127
  Serious: Yes (Hospitalization)
  Sender: FDA-Public Use
  Company Number: AR-ABBOTT-12P-007-1019165-00

PATIENT
  Age: 16 Year
  Sex: Male
  Weight: 56 kg

DRUGS (3)
  1. RITONAVIR [Suspect]
     Indication: HIV INFECTION
     Route: 048
  2. DARUNAVIR [Concomitant]
     Indication: HIV INFECTION
     Route: 048
  3. ETRAVIRINE [Concomitant]
     Indication: HIV INFECTION
     Route: 048

REACTIONS (1)
  - Encephalopathy [Recovered/Resolved]
